FAERS Safety Report 24459767 (Version 1)
Quarter: 2024Q4

REPORT INFORMATION
  Report Type: Report from Study
  Country: US (occurrence: US)
  Receive Date: 20241018
  Receipt Date: 20241018
  Transmission Date: 20250114
  Serious: No
  Sender: ROCHE
  Company Number: US-ROCHE-3556683

PATIENT
  Age: 62 Year
  Sex: Male

DRUGS (6)
  1. RITUXAN [Suspect]
     Active Substance: RITUXIMAB
     Indication: Evans syndrome
     Dosage: SERVICE DATE 05/APR/2024, 11/APR/2024, 18/APR/2024, 25/APR/2024
     Route: 065
  2. BACTRIM [Concomitant]
     Active Substance: SULFAMETHOXAZOLE\TRIMETHOPRIM
  3. BASAGLAR [Concomitant]
     Active Substance: INSULIN GLARGINE
  4. OMEPRAZOLE [Concomitant]
     Active Substance: OMEPRAZOLE
  5. PREDNISOLONE [Concomitant]
     Active Substance: PREDNISOLONE
  6. NOVOLOG [Concomitant]
     Active Substance: INSULIN ASPART

REACTIONS (2)
  - Off label use [Unknown]
  - No adverse event [Unknown]
